FAERS Safety Report 7361480-5 (Version None)
Quarter: 2011Q1

REPORT INFORMATION
  Report Type: 
  Country: None (occurrence: None)
  Receive Date: 20110318
  Receipt Date: 20110306
  Transmission Date: 20110831
  Serious: Yes (Other)
  Sender: FDA-Public Use
  Company Number: PHHY2011DE19592

PATIENT
  Age: 25 Year
  Sex: Male

DRUGS (6)
  1. TAVOR [Concomitant]
  2. HALDOL [Concomitant]
  3. LEPONEX [Suspect]
     Indication: SCHIZOPHRENIA, PARANOID TYPE
     Dosage: UNK
     Route: 048
     Dates: start: 20110218
  4. SOLIAN [Concomitant]
     Dosage: 1200 MG, UNK
  5. LEPONEX [Suspect]
     Dosage: 175 MG, UNK
     Route: 048
  6. AKINETON [Concomitant]

REACTIONS (5)
  - PYREXIA [None]
  - MALAISE [None]
  - FATIGUE [None]
  - LEUKOCYTOSIS [None]
  - C-REACTIVE PROTEIN INCREASED [None]
